FAERS Safety Report 23173010 (Version 1)
Quarter: 2023Q4

REPORT INFORMATION
  Report Type: Spontaneous
  Country: None (occurrence: US)
  Receive Date: 20231110
  Receipt Date: 20231110
  Transmission Date: 20240110
  Serious: No
  Sender: FDA-Public Use
  Company Number: US-Harrow Eye-2148126

PATIENT
  Age: 10 Year

DRUGS (4)
  1. MAXITROL [Suspect]
     Active Substance: DEXAMETHASONE\NEOMYCIN SULFATE\POLYMYXIN B SULFATE
     Indication: Product used for unknown indication
     Route: 047
     Dates: start: 20210317, end: 20210420
  2. LUXTURNA [Suspect]
     Active Substance: VORETIGENE NEPARVOVEC-RZYL
     Dates: start: 20210223, end: 20210223
  3. PREDNISONE [Suspect]
     Active Substance: PREDNISONE
     Route: 048
     Dates: start: 20210313, end: 20210405
  4. FLUOROMETHOLONE [Suspect]
     Active Substance: FLUOROMETHOLONE
     Dates: start: 20210423, end: 20210521

REACTIONS (2)
  - Intraocular pressure increased [Recovered/Resolved]
  - Eye inflammation [Recovered/Resolved]
